FAERS Safety Report 5396045-8 (Version None)
Quarter: 2007Q3

REPORT INFORMATION
  Report Type: 
  Country: None (occurrence: None)
  Receive Date: 20070724
  Receipt Date: 20070712
  Transmission Date: 20080115
  Serious: Yes (Other)
  Sender: FDA-Public Use
  Company Number: US-PFIZER INC-2007059094

PATIENT
  Sex: Male
  Weight: 75 kg

DRUGS (2)
  1. CHANTIX [Suspect]
     Indication: SMOKING CESSATION THERAPY
     Route: 048
  2. PAXIL [Concomitant]

REACTIONS (6)
  - ANXIETY [None]
  - COGNITIVE DISORDER [None]
  - DRUG DOSE OMISSION [None]
  - MEDICATION ERROR [None]
  - PARAESTHESIA [None]
  - SUICIDE ATTEMPT [None]
